FAERS Safety Report 15887276 (Version 1)
Quarter: 2019Q1

REPORT INFORMATION
  Report Type: Spontaneous
  Country: FR (occurrence: FR)
  Receive Date: 20190130
  Receipt Date: 20190130
  Transmission Date: 20190417
  Serious: Yes (Other)
  Sender: FDA-Public Use
  Company Number: FR-SUN PHARMACEUTICAL INDUSTRIES LTD-2019RR-197433

PATIENT
  Sex: Female

DRUGS (9)
  1. AFINITOR [Suspect]
     Active Substance: EVEROLIMUS
     Indication: DISEASE PROGRESSION
     Route: 065
  2. CARBOPLATIN. [Suspect]
     Active Substance: CARBOPLATIN
     Indication: METASTASES TO CENTRAL NERVOUS SYSTEM
     Route: 065
  3. PALBOCICLIB [Suspect]
     Active Substance: PALBOCICLIB
     Indication: DISEASE PROGRESSION
     Dosage: 125 MILLIGRAM, DAILY, THREE WEEKS OUT OF FOUR
     Route: 065
  4. FULVESTRANT. [Suspect]
     Active Substance: FULVESTRANT
     Indication: DISEASE PROGRESSION
     Dosage: UNK
     Route: 065
  5. NAVELBINE [Suspect]
     Active Substance: VINORELBINE TARTRATE
     Indication: DISEASE PROGRESSION
     Route: 065
  6. EXEMESTANE. [Suspect]
     Active Substance: EXEMESTANE
     Dosage: UNK
     Route: 065
  7. EXEMESTANE. [Suspect]
     Active Substance: EXEMESTANE
     Indication: METASTASIS
     Dosage: UNK
     Route: 065
  8. DOXORUBICIN [Suspect]
     Active Substance: DOXORUBICIN
     Indication: METASTASES TO CENTRAL NERVOUS SYSTEM
     Route: 065
  9. BEVACIZUMAB. [Suspect]
     Active Substance: BEVACIZUMAB
     Indication: METASTASIS
     Route: 065

REACTIONS (9)
  - Neutropenia [Recovered/Resolved]
  - Metastases to central nervous system [Unknown]
  - Disease progression [Unknown]
  - Anaemia [Recovered/Resolved]
  - Thrombocytopenia [Recovered/Resolved]
  - Dyspnoea [Unknown]
  - Drug effect incomplete [Unknown]
  - Drug ineffective [Unknown]
  - Pleural effusion [Unknown]
